FAERS Safety Report 5668121-3 (Version None)
Quarter: 2008Q1

REPORT INFORMATION
  Report Type: 
  Country: None (occurrence: None)
  Receive Date: 20080315
  Receipt Date: 20080213
  Transmission Date: 20080703
  Serious: Yes (Hospitalization)
  Sender: FDA-Public Use
  Company Number: US-ABBOTT-08P-163-0438369-00

PATIENT
  Sex: Female
  Weight: 47.67 kg

DRUGS (12)
  1. HUMIRA [Suspect]
     Indication: CROHN'S DISEASE
     Route: 058
     Dates: start: 20080211, end: 20080211
  2. HUMIRA [Suspect]
     Route: 058
     Dates: start: 20080219
  3. POTASSIUM CHLORIDE [Concomitant]
     Indication: HYPOKALAEMIA
     Route: 048
  4. CYRENIUM [Concomitant]
     Indication: BLOOD POTASSIUM
  5. MESALAMINE [Concomitant]
     Indication: ANTIINFLAMMATORY THERAPY
  6. LEBRIX [Concomitant]
     Indication: MUSCLE SPASMS
  7. ALPRAZOLAM [Concomitant]
     Indication: DRUG USE FOR UNKNOWN INDICATION
  8. BUDESONIDE [Concomitant]
     Indication: DRUG USE FOR UNKNOWN INDICATION
  9. LISINOPRIL [Concomitant]
     Indication: DRUG USE FOR UNKNOWN INDICATION
  10. ACETAMINOPHEN W/ PROPOXYPHENE HCL [Concomitant]
     Indication: PAIN
  11. FAMOTIDINE [Concomitant]
     Indication: DRUG USE FOR UNKNOWN INDICATION
  12. FLUOXETINE HYDROCHLORIDE [Concomitant]
     Indication: DRUG USE FOR UNKNOWN INDICATION

REACTIONS (4)
  - CROHN'S DISEASE [None]
  - HYPOKALAEMIA [None]
  - NAUSEA [None]
  - VOMITING [None]
